FAERS Safety Report 7226496-8 (Version None)
Quarter: 2011Q1

REPORT INFORMATION
  Report Type: 
  Country: None (occurrence: None)
  Receive Date: 20110114
  Receipt Date: 20110105
  Transmission Date: 20110831
  Serious: Yes (Other)
  Sender: FDA-Public Use
  Company Number: US-JNJFOC-20110101365

PATIENT
  Sex: Female
  Weight: 65.77 kg

DRUGS (4)
  1. KLONOPIN [Concomitant]
     Indication: ANXIETY
     Route: 048
  2. FENTANYL-100 [Suspect]
     Indication: BREAST CANCER
     Route: 062
  3. FENTANYL-100 [Suspect]
     Indication: PROCEDURAL COMPLICATION
     Route: 062
  4. CYMBALTA [Concomitant]
     Indication: PAIN
     Route: 048

REACTIONS (9)
  - HYPOKINESIA [None]
  - DRUG DOSE OMISSION [None]
  - NIGHT SWEATS [None]
  - HYPERSOMNIA [None]
  - PRODUCT QUALITY ISSUE [None]
  - DECREASED APPETITE [None]
  - BEDRIDDEN [None]
  - TREMOR [None]
  - ASTHENIA [None]
